FAERS Safety Report 8277670-3 (Version None)
Quarter: 2012Q2

REPORT INFORMATION
  Report Type: 
  Country: None (occurrence: None)
  Receive Date: 20120412
  Receipt Date: 20120409
  Transmission Date: 20120825
  Serious: No
  Sender: FDA-Public Use
  Company Number: US-TEVA-332598USA

PATIENT
  Sex: Male

DRUGS (1)
  1. AZILECT [Suspect]
     Route: 048

REACTIONS (1)
  - INTERVERTEBRAL DISC DISORDER [None]
